FAERS Safety Report 22219848 (Version 2)
Quarter: 2023Q2

REPORT INFORMATION
  Report Type: Spontaneous
  Country: US (occurrence: US)
  Receive Date: 20230417
  Receipt Date: 20230419
  Transmission Date: 20230721
  Serious: No
  Sender: FDA-Public Use
  Company Number: US-BRISTOL-MYERS SQUIBB COMPANY-2023-053798

PATIENT
  Age: 72 Year
  Sex: Male
  Weight: 86.18 kg

DRUGS (1)
  1. REVLIMID [Suspect]
     Active Substance: LENALIDOMIDE
     Indication: Plasma cell myeloma
     Dosage: 2W, 1W OFF
     Route: 048

REACTIONS (10)
  - Dizziness [Unknown]
  - Gait disturbance [Unknown]
  - Nausea [Unknown]
  - Vertigo [Unknown]
  - Asthenia [Unknown]
  - Bone pain [Unknown]
  - Condition aggravated [Unknown]
  - Peripheral swelling [Unknown]
  - Rash [Recovered/Resolved]
  - Off label use [Unknown]
